FAERS Safety Report 4511277-6 (Version None)
Quarter: 2004Q4

REPORT INFORMATION
  Report Type: 
  Country: None (occurrence: None)
  Receive Date: 20041122
  Receipt Date: 20041105
  Transmission Date: 20050328
  Serious: Yes (Life-Threatening)
  Sender: FDA-Public Use
  Company Number: 2004AP05471

PATIENT
  Age: 80 Year
  Sex: Male
  Weight: 51 kg

DRUGS (11)
  1. OMEPRAL [Suspect]
     Indication: REFLUX OESOPHAGITIS
     Dosage: 20 MG DAILY PO
     Route: 048
     Dates: start: 20040928, end: 20041019
  2. ADALAT CC [Concomitant]
  3. MICARDIS [Concomitant]
  4. DIGOSIN [Concomitant]
  5. LASIX [Concomitant]
  6. RYTHMODAN [Concomitant]
  7. MUCODYNE [Concomitant]
  8. DASEN [Concomitant]
  9. THEO-DUR [Concomitant]
  10. SLOW-K [Concomitant]
  11. PANALDINE [Concomitant]

REACTIONS (1)
  - HAEMOGLOBIN DECREASED [None]
